FAERS Safety Report 9320987 (Version 1)
Quarter: 2013Q2

REPORT INFORMATION
  Report Type: Spontaneous
  Country: US (occurrence: US)
  Receive Date: 20130531
  Receipt Date: 20130531
  Transmission Date: 20140414
  Serious: No
  Sender: FDA-Public Use
  Company Number: US-PFIZER INC-2013164515

PATIENT
  Age: 65 Year
  Sex: Female
  Weight: 58.5 kg

DRUGS (4)
  1. SOLU-MEDROL [Suspect]
     Indication: NECK PAIN
     Dosage: UNK
  2. SOLU-MEDROL [Suspect]
     Indication: MUSCULOSKELETAL PAIN
  3. SOLU-MEDROL [Suspect]
     Indication: PAIN IN EXTREMITY
  4. SOLU-MEDROL [Suspect]
     Indication: DRY SKIN

REACTIONS (1)
  - Drug effect incomplete [Unknown]
